FAERS Safety Report 25790896 (Version 2)
Quarter: 2025Q4

REPORT INFORMATION
  Report Type: Report from Study
  Country: EU (occurrence: EU)
  Receive Date: 20250911
  Receipt Date: 20251006
  Transmission Date: 20260117
  Serious: Yes (Death, Life-Threatening, Hospitalization)
  Sender: RADIUS PHARM
  Company Number: EU-THERAMEX-2025003202

PATIENT
  Age: 86 Year
  Sex: Female
  Weight: 60 kg

DRUGS (1)
  1. ABALOPARATIDE [Suspect]
     Active Substance: ABALOPARATIDE
     Indication: Osteoporosis
     Dosage: 80 MCG/DOSE SOLUTION FOR INJECTION IN PRE-FILLED PEN1 INJECTION EVERY 24 HOURS
     Route: 058
     Dates: end: 20250901

REACTIONS (2)
  - Respiratory distress [Fatal]
  - Arrhythmia [Fatal]

NARRATIVE: CASE EVENT DATE: 20250801
